FAERS Safety Report 6843845-0 (Version None)
Quarter: 2010Q3

REPORT INFORMATION
  Report Type: 
  Country: None (occurrence: None)
  Receive Date: 20100715
  Receipt Date: 20100702
  Transmission Date: 20110219
  Serious: Yes (Hospitalization, Other)
  Sender: FDA-Public Use
  Company Number: PHHY2009AU04868

PATIENT
  Sex: Female

DRUGS (1)
  1. CLOZARIL [Suspect]
     Dosage: 400 MG
     Dates: start: 20030519, end: 20100401

REACTIONS (4)
  - DRUG INEFFECTIVE [None]
  - HALLUCINATION, AUDITORY [None]
  - MENTAL DISORDER [None]
  - TREATMENT NONCOMPLIANCE [None]
